FAERS Safety Report 8928668 (Version 1)
Quarter: 2012Q4

REPORT INFORMATION
  Report Type: Spontaneous
  Country: US (occurrence: None)
  Receive Date: 20121120
  Receipt Date: 20121120
  Transmission Date: 20130627
  Serious: Yes (Other)
  Sender: FDA-Public Use
  Company Number: DSM-2012-01253

PATIENT
  Age: 64 Year
  Sex: Male

DRUGS (3)
  1. ALTEIS DUO [Suspect]
     Route: 048
     Dates: end: 2012
  2. ALTEIS [Suspect]
     Route: 048
     Dates: start: 2012, end: 2012
  3. SOTALEX [Concomitant]

REACTIONS (5)
  - Diarrhoea [None]
  - Weight decreased [None]
  - Dehydration [None]
  - Hypotension [None]
  - Renal failure acute [None]
